FAERS Safety Report 4767599-7 (Version None)
Quarter: 2005Q3

REPORT INFORMATION
  Report Type: 
  Country: None (occurrence: None)
  Receive Date: 20050913
  Receipt Date: 20050404
  Transmission Date: 20060218
  Serious: Yes (Hospitalization)
  Sender: FDA-Public Use
  Company Number: US-MERCK-0504USA00693

PATIENT
  Age: 63 Year
  Sex: Male
  Weight: 86 kg

DRUGS (14)
  1. VIOXX [Suspect]
     Indication: RHEUMATOID ARTHRITIS
     Route: 048
     Dates: start: 20021201, end: 20040930
  2. ASPIRIN [Concomitant]
     Route: 048
     Dates: start: 20000101
  3. ACTOS [Concomitant]
     Route: 065
  4. MICRONASE [Concomitant]
     Route: 065
  5. KLOTRIX [Concomitant]
     Route: 065
  6. AXID [Concomitant]
     Route: 065
  7. TENORETIC 100 [Concomitant]
     Route: 065
     Dates: start: 20020101, end: 20030301
  8. CLARITIN [Concomitant]
     Route: 065
  9. FUROSEMIDE [Concomitant]
     Route: 065
     Dates: start: 20020101, end: 20030101
  10. KLONOPIN [Concomitant]
     Route: 065
  11. LIPITOR [Concomitant]
     Route: 065
  12. COZAAR [Concomitant]
     Route: 048
     Dates: start: 20030701
  13. LOPRESSOR [Concomitant]
     Route: 048
     Dates: start: 20030301, end: 20030301
  14. PLAVIX [Concomitant]
     Route: 048
     Dates: start: 20030101

REACTIONS (8)
  - ACUTE MYOCARDIAL INFARCTION [None]
  - CHEST PAIN [None]
  - CORONARY ARTERY DISEASE [None]
  - CORONARY ARTERY OCCLUSION [None]
  - DEPRESSION [None]
  - HYPOKALAEMIA [None]
  - HYPOMAGNESAEMIA [None]
  - SINUSITIS [None]
